FAERS Safety Report 4778169-9 (Version None)
Quarter: 2005Q3

REPORT INFORMATION
  Report Type: 
  Country: None (occurrence: None)
  Receive Date: 20050923
  Receipt Date: 20050923
  Transmission Date: 20060218
  Serious: Yes (Death, Life-Threatening, Hospitalization, Disabling, Congenital Anomaly)
  Sender: FDA-Public Use
  Company Number: None

PATIENT
  Age: 58 Year
  Sex: Male
  Weight: 85.7 kg

DRUGS (4)
  1. LISINOPRIL [Suspect]
  2. HC 1%/NEOMYCIN 3.5MG/POLYMYXIN OTIC SOLN [Concomitant]
  3. TRAMADOL HCL [Concomitant]
  4. OMEPRAZOLE [Concomitant]

REACTIONS (1)
  - MYALGIA [None]
